FAERS Safety Report 7525101-0 (Version None)
Quarter: 2011Q2

REPORT INFORMATION
  Report Type: 
  Country: None (occurrence: None)
  Receive Date: 20110606
  Receipt Date: 20110601
  Transmission Date: 20111010
  Serious: Yes (Other)
  Sender: FDA-Public Use
  Company Number: US-AMGEN-USASP2011026076

PATIENT
  Age: 73 Year
  Sex: Male
  Weight: 88.889 kg

DRUGS (6)
  1. ATENOLOL [Concomitant]
  2. PREDNISONE [Concomitant]
     Dosage: UNK
  3. AMBIEN [Concomitant]
  4. NPLATE [Suspect]
     Indication: IDIOPATHIC THROMBOCYTOPENIC PURPURA
     Dosage: 533 A?G, QWK
     Dates: start: 20101214
  5. CLOTRIMAZOLE [Concomitant]
  6. NEXIUM [Concomitant]

REACTIONS (4)
  - ECCHYMOSIS [None]
  - VIRAL UPPER RESPIRATORY TRACT INFECTION [None]
  - THERAPEUTIC RESPONSE DECREASED [None]
  - BLOOD BLISTER [None]
